FAERS Safety Report 5993742-8 (Version None)
Quarter: 2008Q4

REPORT INFORMATION
  Report Type: 
  Country: None (occurrence: None)
  Receive Date: 20081212
  Receipt Date: 20081201
  Transmission Date: 20090506
  Serious: Yes (Life-Threatening, Hospitalization, Other)
  Sender: FDA-Public Use
  Company Number: FR-NOVOPROD-281526

PATIENT
  Age: 71 Year
  Sex: Female

DRUGS (2)
  1. ACTRAPID [Suspect]
     Indication: DRUG USE FOR UNKNOWN INDICATION
     Route: 058
  2. ACTRAPID [Suspect]
     Dosage: AS TREATMENT OF HYPERGLYCAEMIA
     Dates: start: 20081016, end: 20081016

REACTIONS (6)
  - CONFUSIONAL STATE [None]
  - HYPERGLYCAEMIA [None]
  - HYPOGLYCAEMIA [None]
  - HYPOGLYCAEMIC COMA [None]
  - HYPOTHERMIA [None]
  - PSYCHOMOTOR RETARDATION [None]
